FAERS Safety Report 8355460-0 (Version None)
Quarter: 2012Q2

REPORT INFORMATION
  Report Type: 
  Country: None (occurrence: None)
  Receive Date: 20120512
  Receipt Date: 20120501
  Transmission Date: 20120825
  Serious: Yes (Other)
  Sender: FDA-Public Use
  Company Number: US-ELI_LILLY_AND_COMPANY-US201205001289

PATIENT
  Sex: Female

DRUGS (1)
  1. FORTEO [Suspect]
     Indication: BONE DISORDER
     Dosage: 20 UG, QD
     Route: 065
     Dates: start: 20090817

REACTIONS (3)
  - HIP FRACTURE [None]
  - FRACTURE DISPLACEMENT [None]
  - FALL [None]
